FAERS Safety Report 18753952 (Version 2)
Quarter: 2021Q1

REPORT INFORMATION
  Report Type: Spontaneous
  Country: FR (occurrence: FR)
  Receive Date: 20210119
  Receipt Date: 20210218
  Transmission Date: 20210419
  Serious: Yes (Death, Other)
  Sender: FDA-Public Use
  Company Number: FR-ALXN-A202100210

PATIENT
  Age: 58 Year
  Sex: Male

DRUGS (2)
  1. SOLIRIS [Suspect]
     Active Substance: ECULIZUMAB
     Indication: COVID-19
     Dosage: 900 MG, EVERY 4 DAYS
     Route: 042
     Dates: start: 2020, end: 2020
  2. SOLIRIS [Suspect]
     Active Substance: ECULIZUMAB
     Indication: OFF LABEL USE
     Dosage: 900 MG, QW
     Route: 042
     Dates: start: 2020

REACTIONS (3)
  - Multiple organ dysfunction syndrome [Fatal]
  - Off label use [Recovered/Resolved]
  - Septic shock [Fatal]

NARRATIVE: CASE EVENT DATE: 2020
